FAERS Safety Report 11250651 (Version 1)
Quarter: 2015Q3

REPORT INFORMATION
  Report Type: Spontaneous
  Country: US (occurrence: US)
  Receive Date: 20150708
  Receipt Date: 20150708
  Transmission Date: 20151125
  Serious: No
  Sender: FDA-Public Use
  Company Number: US-ELI_LILLY_AND_COMPANY-US201103003097

PATIENT
  Age: 57 Year
  Sex: Female

DRUGS (4)
  1. ANTIEMETICS AND ANTINAUSEANTS [Concomitant]
     Active Substance: UNSPECIFIED INGREDIENT
  2. SALINE [Concomitant]
     Active Substance: SODIUM CHLORIDE
  3. GEMZAR [Suspect]
     Active Substance: GEMCITABINE HYDROCHLORIDE
     Indication: BREAST CANCER
     Dosage: 1000 MG/M2, UNK
     Route: 042
     Dates: start: 20110113
  4. HEPARIN [Concomitant]
     Active Substance: HEPARIN SODIUM

REACTIONS (1)
  - Off label use [Not Recovered/Not Resolved]
